FAERS Safety Report 9254499 (Version 1)
Quarter: 2013Q1

REPORT INFORMATION
  Report Type: Spontaneous
  Country: US (occurrence: None)
  Receive Date: 20121203
  Receipt Date: 20121203
  Transmission Date: 20140127
  Serious: Yes (Hospitalization, Other)
  Sender: FDA-Public Use
  Company Number: 2011SP050830

PATIENT
  Age: 37 Year
  Sex: Female
  Weight: 73.5 kg

DRUGS (3)
  1. NUVARING [Suspect]
     Indication: HORMONE THERAPY
     Dates: start: 200808, end: 200811
  2. NUVARING [Suspect]
     Indication: MENOPAUSE
     Dates: start: 200808, end: 200811
  3. CLINDAMYCIN (CLINDAMYCIN) [Suspect]
     Indication: URINARY TRACT INFECTION

REACTIONS (11)
  - Pulmonary embolism [None]
  - Ovarian cyst [None]
  - Premenstrual syndrome [None]
  - Varicose vein [None]
  - Bronchitis [None]
  - Muscle strain [None]
  - Hepatic cyst [None]
  - Gastrooesophageal reflux disease [None]
  - Fatigue [None]
  - Headache [None]
  - Off label use [None]
